FAERS Safety Report 8567687-3 (Version None)
Quarter: 2012Q3

REPORT INFORMATION
  Report Type: 
  Country: None (occurrence: None)
  Receive Date: 20120803
  Receipt Date: 20120723
  Transmission Date: 20120928
  Serious: Yes (Hospitalization, Other)
  Sender: FDA-Public Use
  Company Number: PE-ELI_LILLY_AND_COMPANY-PE201207007248

PATIENT
  Age: 27 Year
  Sex: Male

DRUGS (2)
  1. ZYPREXA [Suspect]
     Dosage: 10 MG, UNKNOWN
     Dates: start: 20110405
  2. RISPERIDONE [Concomitant]
     Dosage: UNK UNK, UNKNOWN
     Dates: start: 20120101

REACTIONS (2)
  - DRUG INEFFECTIVE [None]
  - MENTAL DISORDER [None]
